FAERS Safety Report 5332015-3 (Version None)
Quarter: 2007Q2

REPORT INFORMATION
  Report Type: 
  Country: None (occurrence: None)
  Receive Date: 20070523
  Receipt Date: 20070517
  Transmission Date: 20071010
  Serious: Yes (Other)
  Sender: FDA-Public Use
  Company Number: PHEH2007US07529

PATIENT
  Sex: Female

DRUGS (1)
  1. ELIDEL [Suspect]
     Route: 061

REACTIONS (3)
  - BREAST CANCER [None]
  - BREAST NECROSIS [None]
  - MASTECTOMY [None]
